FAERS Safety Report 6470500-1 (Version None)
Quarter: 2009Q4

REPORT INFORMATION
  Report Type: 
  Country: None (occurrence: None)
  Receive Date: 20091202
  Receipt Date: 20091202
  Transmission Date: 20100525
  Serious: Yes (Other)
  Sender: FDA-Public Use
  Company Number: None

PATIENT
  Age: 53 Year
  Sex: Female
  Weight: 58.9676 kg

DRUGS (1)
  1. LATISSE [Suspect]
     Indication: HYPOTRICHOSIS
     Dosage: 1 DROP PER EYELID ONCE DAILY OPHTHALMIC
     Route: 047
     Dates: start: 20090910, end: 20091120

REACTIONS (1)
  - RETINAL DETACHMENT [None]
